FAERS Safety Report 5314665-3 (Version None)
Quarter: 2007Q2

REPORT INFORMATION
  Report Type: 
  Country: None (occurrence: None)
  Receive Date: 20070427
  Receipt Date: 20070423
  Transmission Date: 20071010
  Serious: Yes (Hospitalization)
  Sender: FDA-Public Use
  Company Number: THQ2007A00308

PATIENT
  Age: 66 Year
  Sex: Female

DRUGS (3)
  1. ACTOS [Suspect]
     Indication: INSULIN-REQUIRING TYPE II DIABETES MELLITUS
     Dosage: 15 MG (15 MG, 1 IN 1 D) PER ORAL
     Route: 048
     Dates: start: 20030607, end: 20031011
  2. GLUCOPHAGE [Concomitant]
  3. DIAMICRON (GLICLAZIDE) [Concomitant]

REACTIONS (1)
  - KNEE OPERATION [None]
